FAERS Safety Report 14369354 (Version 1)
Quarter: 2018Q1

REPORT INFORMATION
  Report Type: Spontaneous
  Country: CN (occurrence: CN)
  Receive Date: 20180109
  Receipt Date: 20180109
  Transmission Date: 20180509
  Serious: Yes (Life-Threatening, Hospitalization)
  Sender: FDA-Public Use
  Company Number: CN-BAXTER-2018BAX000415

PATIENT
  Age: 92 Year
  Sex: Male
  Weight: 75 kg

DRUGS (7)
  1. 0.9% SODIUM CHLORIDE INJECTION [Suspect]
     Active Substance: SODIUM CHLORIDE
     Dosage: DOSE RE-INTRODUCED
     Route: 041
     Dates: start: 20171018, end: 20171024
  2. TAZOCIN [Suspect]
     Active Substance: PIPERACILLIN SODIUM\TAZOBACTAM SODIUM
     Dosage: DOSE RE-INTRODUCED
     Route: 041
     Dates: start: 20171018, end: 20171024
  3. METHYLPREDNISOLONE. [Suspect]
     Active Substance: METHYLPREDNISOLONE
     Indication: CYANOSIS
     Route: 041
     Dates: start: 20171018
  4. 0.9% SODIUM CHLORIDE INJECTION [Suspect]
     Active Substance: SODIUM CHLORIDE
     Indication: MEDICATION DILUTION
     Route: 041
     Dates: start: 20171013, end: 20171018
  5. METHYLPREDNISOLONE. [Suspect]
     Active Substance: METHYLPREDNISOLONE
     Indication: TACHYPNOEA
  6. TAZOCIN [Suspect]
     Active Substance: PIPERACILLIN SODIUM\TAZOBACTAM SODIUM
     Indication: INFECTION
     Route: 041
     Dates: start: 20171013, end: 20171018
  7. METHYLPREDNISOLONE. [Suspect]
     Active Substance: METHYLPREDNISOLONE
     Indication: CHILLS

REACTIONS (5)
  - Cyanosis [Recovering/Resolving]
  - Chills [Recovering/Resolving]
  - Tachypnoea [Recovering/Resolving]
  - Flushing [Recovering/Resolving]
  - Rash erythematous [Recovering/Resolving]

NARRATIVE: CASE EVENT DATE: 20171018
